FAERS Safety Report 9290961 (Version 1)
Quarter: 2013Q2

REPORT INFORMATION
  Report Type: Spontaneous
  Country: US (occurrence: None)
  Receive Date: 20130513
  Receipt Date: 20130513
  Transmission Date: 20140414
  Serious: No
  Sender: FDA-Public Use
  Company Number: THQ2013A03362

PATIENT
  Age: 79 Year
  Sex: Female

DRUGS (7)
  1. LANSOPRAZOLE (LANSOPRAZOLE) [Suspect]
     Route: 048
  2. SPIRONOLACTONE [Suspect]
     Route: 048
  3. LEVETIRACETAM [Concomitant]
  4. CALCIUM D3 (COLECALCIFEROL, CALCIUM CARBONATE) [Concomitant]
  5. PARACETAMOL [Concomitant]
  6. PUROSEMIDE [Concomitant]
     Dosage: 80MG (80MG, 1 IN 1 D)
     Route: 048
  7. OXCARBAZEPINE [Suspect]
     Dosage: 300MG ONCE IN THE MORNING, 600MG ONCE AT NIGHT
     Route: 048

REACTIONS (3)
  - Hyponatraemia [None]
  - Balance disorder [None]
  - Confusional state [None]
